FAERS Safety Report 19963035 (Version 2)
Quarter: 2021Q4

REPORT INFORMATION
  Report Type: Report from Study
  Country: SG (occurrence: SG)
  Receive Date: 20211018
  Receipt Date: 20211201
  Transmission Date: 20220303
  Serious: Yes (Hospitalization)
  Sender: FDA-Public Use
  Company Number: SG-NOVARTISPH-NVSC2021SG149040

PATIENT
  Age: 69 Year
  Sex: Female

DRUGS (4)
  1. NAZARTINIB [Suspect]
     Active Substance: NAZARTINIB
     Indication: Non-small cell lung cancer
     Dosage: 100 MG, QD
     Route: 048
     Dates: start: 20200416
  2. NAZARTINIB [Suspect]
     Active Substance: NAZARTINIB
     Dosage: 100 MG, QD
     Route: 048
     Dates: start: 20210702, end: 20210929
  3. TRAMETINIB [Suspect]
     Active Substance: TRAMETINIB
     Indication: Non-small cell lung cancer
     Dosage: 0.5 MG, QD
     Route: 048
     Dates: start: 20201126
  4. MORPHINE MIXTURE [Concomitant]
     Indication: Dyspnoea
     Dosage: 10 MG/5ML
     Route: 065
     Dates: start: 20210414

REACTIONS (1)
  - Dyspnoea [Recovering/Resolving]

NARRATIVE: CASE EVENT DATE: 20210701
